FAERS Safety Report 12802305 (Version 2)
Quarter: 2017Q4

REPORT INFORMATION
  Report Type: Spontaneous
  Country: US (occurrence: US)
  Receive Date: 20161003
  Receipt Date: 20171114
  Transmission Date: 20180320
  Serious: No
  Sender: FDA-Public Use
  Company Number: US-JAZZ-2016-US-012139

PATIENT
  Age: 51 Year
  Sex: Female
  Weight: 41.63 kg

DRUGS (25)
  1. CLONAZEPAM. [Concomitant]
     Active Substance: CLONAZEPAM
  2. ERGOCALCIFEROL. [Concomitant]
     Active Substance: ERGOCALCIFEROL
  3. VANIQA [Concomitant]
     Active Substance: EFLORNITHINE HYDROCHLORIDE
  4. ESTRADIOL TRANSDERMAL SYSTEM [Concomitant]
     Active Substance: ESTRADIOL
     Indication: HORMONE REPLACEMENT THERAPY
  5. TESTOSTERONE. [Concomitant]
     Active Substance: TESTOSTERONE
  6. TRAVATAN Z [Concomitant]
     Active Substance: TRAVOPROST
  7. VALERIAN ROOT [Concomitant]
     Active Substance: VALERIAN
  8. MELATONIN [Concomitant]
     Active Substance: MELATONIN
  9. LOTEMAX [Concomitant]
     Active Substance: LOTEPREDNOL ETABONATE
  10. ESTRACE [Concomitant]
     Active Substance: ESTRADIOL
     Indication: HORMONE REPLACEMENT THERAPY
  11. SPIRONOLACTONE. [Concomitant]
     Active Substance: SPIRONOLACTONE
  12. ARMOUR THYROID [Concomitant]
     Active Substance: THYROID, PORCINE
  13. DIFLUCAN [Concomitant]
     Active Substance: FLUCONAZOLE
  14. VALIUM [Concomitant]
     Active Substance: DIAZEPAM
  15. CREON [Concomitant]
     Active Substance: PANCRELIPASE AMYLASE\PANCRELIPASE LIPASE\PANCRELIPASE PROTEASE
  16. LUNESTA [Concomitant]
     Active Substance: ESZOPICLONE
     Indication: SLEEP DISORDER
     Dosage: UNK
     Dates: start: 2007
  17. KLONOPIN [Concomitant]
     Active Substance: CLONAZEPAM
  18. XYREM [Suspect]
     Active Substance: SODIUM OXYBATE
     Indication: FIBROMYALGIA
     Dosage: 4.5 G, BID
     Route: 048
     Dates: start: 201207
  19. HYDROCORTISONE. [Concomitant]
     Active Substance: HYDROCORTISONE
  20. VIVELLE-DOT [Concomitant]
     Active Substance: ESTRADIOL
  21. NORCO [Concomitant]
     Active Substance: ACETAMINOPHEN\HYDROCODONE BITARTRATE
  22. PROGESTERONE. [Concomitant]
     Active Substance: PROGESTERONE
  23. XYREM [Suspect]
     Active Substance: SODIUM OXYBATE
     Indication: INSOMNIA
  24. AMBIEN CR [Concomitant]
     Active Substance: ZOLPIDEM TARTRATE
     Indication: SLEEP DISORDER
  25. NYSTATIN. [Concomitant]
     Active Substance: NYSTATIN

REACTIONS (2)
  - Weight decreased [Unknown]
  - Pancreatic enzymes decreased [Unknown]

NARRATIVE: CASE EVENT DATE: 2016
